FAERS Safety Report 6234382-5 (Version None)
Quarter: 2009Q2

REPORT INFORMATION
  Report Type: 
  Country: None (occurrence: None)
  Receive Date: 20090616
  Receipt Date: 20090616
  Transmission Date: 20091009
  Serious: Yes (Other)
  Sender: FDA-Public Use
  Company Number: None

PATIENT
  Sex: Female
  Weight: 68.0396 kg

DRUGS (1)
  1. ROXICET [Suspect]
     Indication: ARTHRALGIA
     Dosage: 1-2 TABLETS EVERY 4-6 HOURS PO
     Route: 048
     Dates: start: 20080515, end: 20080527

REACTIONS (2)
  - INADEQUATE ANALGESIA [None]
  - PRODUCT QUALITY ISSUE [None]
